FAERS Safety Report 22619002 (Version 5)
Quarter: 2024Q2

REPORT INFORMATION
  Report Type: Spontaneous
  Country: US (occurrence: US)
  Receive Date: 20230620
  Receipt Date: 20240405
  Transmission Date: 20240716
  Serious: Yes (Other)
  Sender: FDA-Public Use
  Company Number: US-SA-SAC20230601000275

PATIENT
  Age: 45 Year
  Sex: Male

DRUGS (2)
  1. ALPROLIX [Suspect]
     Active Substance: EFTRENONACOG ALFA
     Dosage: 11,000 U (+/-10%), QW (PROPHY)
     Route: 042
  2. ALPROLIX [Suspect]
     Active Substance: EFTRENONACOG ALFA
     Dosage: 11,000 U (+/-10%), QW (PROPHY)
     Route: 042

REACTIONS (7)
  - Haemorrhage [Unknown]
  - Haemorrhage [Unknown]
  - Fall [Unknown]
  - Accident [Unknown]
  - Ligament sprain [Unknown]
  - Contusion [Unknown]
  - Arthralgia [Unknown]

NARRATIVE: CASE EVENT DATE: 20230614
